FAERS Safety Report 22833824 (Version 2)
Quarter: 2023Q4

REPORT INFORMATION
  Report Type: Report from Study
  Country: IT (occurrence: IT)
  Receive Date: 20230817
  Receipt Date: 20231010
  Transmission Date: 20240110
  Serious: Yes (Death)
  Sender: FDA-Public Use
  Company Number: IT-AMGEN-ITANI2023144185

PATIENT
  Sex: Male

DRUGS (1)
  1. SOTORASIB [Suspect]
     Active Substance: SOTORASIB
     Indication: Non-small cell lung cancer
     Dosage: 960 MILLIGRAM, QD, 8 CAPSULE OF 120 MILLIGRAM EACH ONE
     Route: 065
     Dates: start: 20220901, end: 20230223

REACTIONS (1)
  - Non-small cell lung cancer [Fatal]
